FAERS Safety Report 7295947-5 (Version None)
Quarter: 2011Q1

REPORT INFORMATION
  Report Type: 
  Country: None (occurrence: None)
  Receive Date: 20110216
  Receipt Date: 20110207
  Transmission Date: 20110831
  Serious: Yes (Hospitalization)
  Sender: FDA-Public Use
  Company Number: US-ASTRAZENECA-2011SE06755

PATIENT
  Age: 58 Year
  Sex: Female
  Weight: 81.6 kg

DRUGS (13)
  1. PRIMIDONE [Concomitant]
  2. DENSTROPINE [Concomitant]
     Dosage: 1 MG BID PRN
  3. ZOLPIDEM [Concomitant]
  4. LORAZEPAM [Concomitant]
  5. SEROQUEL [Suspect]
     Indication: BIPOLAR DISORDER
     Route: 048
     Dates: start: 20060101
  6. SEROQUEL [Suspect]
     Route: 048
  7. FLUPHENAINE [Concomitant]
  8. AMITRIPTYLINE [Concomitant]
  9. ATENOLOL [Concomitant]
  10. SEROQUEL [Suspect]
     Dosage: TWICE OVER THE LAST FIVE YEARS
     Route: 048
  11. SIMVASTATIN [Concomitant]
  12. SERTRALINE [Concomitant]
  13. LEVOTHYROXINE SODIUM [Concomitant]

REACTIONS (3)
  - CRYING [None]
  - HEADACHE [None]
  - STRESS [None]
